FAERS Safety Report 8268573 (Version 2)
Quarter: 2013Q2

REPORT INFORMATION
  Report Type: Spontaneous
  Country: US (occurrence: None)
  Receive Date: 20111108
  Receipt Date: 20121218
  Transmission Date: 20140414
  Serious: Yes (Hospitalization)
  Sender: FDA-Public Use
  Company Number: PHEH2011US01017

PATIENT
  Age: 72 Year
  Sex: Female
  Weight: 75.5 kg

DRUGS (1)
  1. ZOMETA [Suspect]
     Dosage: 4 MG, INTRAVENOUS
     Route: 042

REACTIONS (2)
  - HYPOCALCAEMIA [None]
  - Tetany [None]
